FAERS Safety Report 8863172 (Version 2)
Quarter: 2012Q4

REPORT INFORMATION
  Report Type: Report from Study
  Country: CZ (occurrence: CZ)
  Receive Date: 20121026
  Receipt Date: 20121109
  Transmission Date: 20130627
  Serious: Yes (Death, Hospitalization)
  Sender: FDA-Public Use
  Company Number: CZ-BRISTOL-MYERS SQUIBB COMPANY-17052291

PATIENT
  Age: 72 Year
  Sex: Male
  Weight: 75 kg

DRUGS (9)
  1. CETUXIMAB [Suspect]
     Indication: COLORECTAL CANCER METASTATIC
     Dosage: Last dose: 180mg/m2
     Route: 042
     Dates: start: 20120913, end: 20121012
  2. IRINOTECAN HCL [Suspect]
     Indication: COLORECTAL CANCER METASTATIC
     Dosage: recent dose:12-Oct-2012
     Route: 042
     Dates: start: 20120913, end: 20121012
  3. GLIMEPIRIDE [Concomitant]
     Route: 048
  4. METFORMIN HCL [Concomitant]
     Route: 048
  5. TAMSULOSIN HCL [Concomitant]
     Dosage: ongoing
     Route: 048
     Dates: start: 2004
  6. TRAMADOL HCL [Concomitant]
     Route: 048
     Dates: start: 201207
  7. FURON [Concomitant]
     Dosage: ongoing
     Route: 048
     Dates: start: 20120928
  8. LACTULOSE [Concomitant]
     Indication: PROPHYLAXIS
     Dosage: ongoing
     Dates: start: 20121007
  9. VEROSPIRON [Concomitant]
     Dosage: ongoing
     Route: 048
     Dates: start: 20121012

REACTIONS (1)
  - Sepsis [Fatal]
